FAERS Safety Report 7263866-6 (Version None)
Quarter: 2011Q1

REPORT INFORMATION
  Report Type: 
  Country: None (occurrence: None)
  Receive Date: 20110130
  Receipt Date: 20101206
  Transmission Date: 20110831
  Serious: Yes (Other)
  Sender: FDA-Public Use
  Company Number: US-ABBOTT-10P-163-0690050-00

PATIENT
  Age: 37 Year
  Sex: Female

DRUGS (16)
  1. FOLIC ACID [Concomitant]
     Indication: VITAMIN SUPPLEMENTATION
  2. FORTACAL [Concomitant]
     Indication: OSTEOPOROSIS
  3. HYDROXYCHLOROQUINE [Concomitant]
     Indication: SJOGREN'S SYNDROME
  4. VALTREX [Concomitant]
     Indication: HERPES SIMPLEX
  5. CARISOPRODOL [Concomitant]
     Indication: NERVE INJURY
  6. HYDROXYCHLOROQUINE [Concomitant]
     Indication: ANKYLOSING SPONDYLITIS
  7. LEXAPRO [Concomitant]
     Indication: DEPRESSION
  8. MARINOL [Concomitant]
     Indication: PAIN MANAGEMENT
  9. HUMIRA [Suspect]
     Indication: RHEUMATOID ARTHRITIS
     Dates: start: 20060501
  10. CARISOPRODOL [Concomitant]
     Indication: MUSCLE INJURY
  11. LYSINE SUPPLEMENT [Concomitant]
     Indication: HERPES SIMPLEX
  12. SAVELLA [Concomitant]
     Indication: RESPIRATORY SYNCYTIAL VIRUS INFECTION
  13. ISOMIAZIDE [Concomitant]
     Indication: LATENT TUBERCULOSIS
  14. DIAZEPAM [Concomitant]
     Indication: ANXIETY
     Dosage: PRN-UP TO TWICE PER DAY
  15. NUCYNTA [Concomitant]
     Indication: PAIN MANAGEMENT
  16. OXYCONTIN [Concomitant]
     Indication: PAIN MANAGEMENT

REACTIONS (2)
  - FATIGUE [None]
  - LATENT TUBERCULOSIS [None]
